FAERS Safety Report 4976567-1 (Version None)
Quarter: 2006Q2

REPORT INFORMATION
  Report Type: 
  Country: None (occurrence: None)
  Receive Date: 20060412
  Receipt Date: 20060403
  Transmission Date: 20061013
  Serious: No
  Sender: FDA-Public Use
  Company Number: S06-USA-01167-02

PATIENT
  Age: 26 Year
  Sex: Female
  Weight: 70.9426 kg

DRUGS (2)
  1. CERVIDIL [Suspect]
     Indication: LABOUR INDUCTION
     Dates: start: 20060315, end: 20060316
  2. VITAMIN AND MINERAL PRENATAL SUPPLEMENT W/ FOLIC ACID CAP [Concomitant]

REACTIONS (9)
  - CAESAREAN SECTION [None]
  - DEVICE FAILURE [None]
  - DRUG EXPOSURE DURING PREGNANCY [None]
  - FAILED INDUCTION OF LABOUR [None]
  - FOETAL DISORDER [None]
  - FOREIGN BODY TRAUMA [None]
  - IRRITABILITY [None]
  - UTERINE CONTRACTIONS ABNORMAL [None]
  - VAGINAL DISORDER [None]
